FAERS Safety Report 25854588 (Version 1)
Quarter: 2025Q3

REPORT INFORMATION
  Report Type: Spontaneous
  Country: US (occurrence: US)
  Receive Date: 20250927
  Receipt Date: 20250927
  Transmission Date: 20251020
  Serious: No
  Sender: SANOFI AVENTIS
  Company Number: US-SA-2025SA285074

PATIENT
  Sex: Female

DRUGS (1)
  1. DUPIXENT [Suspect]
     Active Substance: DUPILUMAB
     Indication: Chronic obstructive pulmonary disease
     Dosage: 300 MG, QOW
     Route: 058
     Dates: start: 20250508

REACTIONS (6)
  - Chronic obstructive pulmonary disease [Unknown]
  - Depression [Unknown]
  - Anxiety [Unknown]
  - Gait disturbance [Unknown]
  - Sciatica [Unknown]
  - Back pain [Unknown]
